FAERS Safety Report 16032839 (Version 5)
Quarter: 2022Q2

REPORT INFORMATION
  Report Type: Spontaneous
  Country: GB (occurrence: GB)
  Receive Date: 20190305
  Receipt Date: 20220506
  Transmission Date: 20220721
  Serious: Yes (Other)
  Sender: FDA-Public Use
  Company Number: GB-EMA-DD-20190213-KUMARVN_P-144443

PATIENT
  Age: 54 Year
  Sex: Female

DRUGS (121)
  1. EXEMESTANE [Suspect]
     Active Substance: EXEMESTANE
     Indication: HER2 positive breast cancer
     Dosage: 25 MILLIGRAM, DAILY
     Route: 048
     Dates: end: 20180110
  2. LETROZOLE [Suspect]
     Active Substance: LETROZOLE
     Indication: HER2 positive breast cancer
     Dosage: 2.5 MILLIGRAM, DAILY
     Route: 048
  3. LETROZOLE [Suspect]
     Active Substance: LETROZOLE
     Dosage: 2.5 UNK
     Route: 048
     Dates: start: 201507, end: 20170427
  4. TRASTUZUMAB [Suspect]
     Active Substance: TRASTUZUMAB
     Indication: HER2 positive breast cancer
     Dosage: 600 MILLIGRAM, MONTHLY
     Route: 058
     Dates: start: 20150716, end: 20171222
  5. TRASTUZUMAB [Suspect]
     Active Substance: TRASTUZUMAB
     Dosage: 420 MILLIGRAM/ 4 WEEKS
     Route: 042
  6. TRASTUZUMAB [Suspect]
     Active Substance: TRASTUZUMAB
     Dosage: UNK
     Route: 065
  7. DEXAMETHASONE [Concomitant]
     Active Substance: DEXAMETHASONE
     Indication: Metastases to bone
     Dosage: REDUCING DOSE FROM HOSPITAL ADMISSION 8/OCT/2015- 10/OCT/2015
     Route: 048
     Dates: start: 20151008, end: 20151020
  8. DEXAMETHASONE [Concomitant]
     Active Substance: DEXAMETHASONE
     Dosage: 4 MILLIGRAM
     Route: 048
     Dates: start: 20151020, end: 20151103
  9. DEXAMETHASONE [Concomitant]
     Active Substance: DEXAMETHASONE
     Dosage: 4 MILLIGRAM
     Route: 048
     Dates: start: 20151104, end: 20151110
  10. DEXAMETHASONE [Concomitant]
     Active Substance: DEXAMETHASONE
     Dosage: REDUCING WEEKLY DOSE
     Route: 048
     Dates: start: 20151111, end: 20151117
  11. DEXAMETHASONE [Concomitant]
     Active Substance: DEXAMETHASONE
     Dosage: 1 MILLIGRAM
     Route: 048
     Dates: start: 20151118, end: 20151124
  12. DEXAMETHASONE [Concomitant]
     Active Substance: DEXAMETHASONE
     Dosage: 1 MILLIGRAM
     Route: 048
     Dates: start: 20151125, end: 20151202
  13. GABAPENTIN [Concomitant]
     Active Substance: GABAPENTIN
     Indication: Product used for unknown indication
     Dosage: 300 MILLIGRAM, TID
     Route: 048
     Dates: start: 20151231
  14. GABAPENTIN [Concomitant]
     Active Substance: GABAPENTIN
     Dosage: 1.2 GRAM, TID
     Route: 048
  15. GABAPENTIN [Concomitant]
     Active Substance: GABAPENTIN
     Dosage: 1.2 GRAM, UNK
     Route: 067
  16. MEROPENEM [Concomitant]
     Active Substance: MEROPENEM
     Indication: Pyrexia
     Dosage: 1 GRAM, TID
     Route: 042
     Dates: start: 20180813, end: 20180814
  17. MEROPENEM [Concomitant]
     Active Substance: MEROPENEM
     Dosage: 1 GRAM, DAILY
     Route: 042
     Dates: start: 20181222, end: 20181227
  18. MEROPENEM [Concomitant]
     Active Substance: MEROPENEM
     Dosage: 1 GRAM, UNK
     Route: 042
     Dates: start: 20200728, end: 20200728
  19. MEROPENEM [Concomitant]
     Active Substance: MEROPENEM
     Dosage: 1 GRAM, UNK
     Route: 042
     Dates: start: 20190205, end: 20190205
  20. MEROPENEM [Concomitant]
     Active Substance: MEROPENEM
     Dosage: 1 GRAM, UNK
     Route: 042
     Dates: start: 20200622, end: 20200622
  21. MEROPENEM [Concomitant]
     Active Substance: MEROPENEM
     Dosage: 1 GRAM, TID
     Route: 042
     Dates: start: 20190610, end: 20190617
  22. MORPHINE SULFATE [Concomitant]
     Active Substance: MORPHINE SULFATE
     Indication: Back pain
     Dosage: ONCE AT NIGHT
     Route: 048
     Dates: start: 201504, end: 20160516
  23. MORPHINE SULFATE [Concomitant]
     Active Substance: MORPHINE SULFATE
     Dosage: 30 MILLIGRAM, DAILY
     Route: 048
     Dates: start: 201504
  24. MORPHINE SULFATE [Concomitant]
     Active Substance: MORPHINE SULFATE
     Dosage: ONCE AT NIGHT
     Route: 048
     Dates: start: 20150516, end: 201611
  25. DENOSUMAB [Concomitant]
     Active Substance: DENOSUMAB
     Indication: Metastases to bone
     Dosage: 120 MILLIGRAM
     Route: 058
     Dates: start: 20170604, end: 20170613
  26. DENOSUMAB [Concomitant]
     Active Substance: DENOSUMAB
     Dosage: 120 MILLIGRAM
     Route: 058
     Dates: start: 20180118
  27. ZOMETA [Concomitant]
     Active Substance: ZOLEDRONIC ACID
     Indication: Product used for unknown indication
     Dosage: 4 MILLIGRAM
     Route: 042
     Dates: start: 20150827, end: 20160314
  28. ACETAMINOPHEN [Concomitant]
     Active Substance: ACETAMINOPHEN
     Indication: Product used for unknown indication
     Dosage: AS NEEDED
     Route: 048
     Dates: start: 201504
  29. PENICILLIN G [Concomitant]
     Active Substance: PENICILLIN G
     Indication: Pyrexia
     Dosage: 1.2 GRAM, QID
     Route: 042
     Dates: start: 20180912, end: 20180915
  30. PENICILLIN G [Concomitant]
     Active Substance: PENICILLIN G
     Indication: Cellulitis
     Dosage: UNK
     Route: 065
  31. DIAZEPAM [Concomitant]
     Active Substance: DIAZEPAM
     Indication: Back pain
     Dosage: 2 MILLIGRAM, DAILY
     Route: 048
     Dates: start: 20180105
  32. AMOXICILLIN [Concomitant]
     Active Substance: AMOXICILLIN
     Indication: Lower respiratory tract infection
     Dosage: UNK
     Route: 048
     Dates: start: 20170701, end: 20170706
  33. AMOXICILLIN [Concomitant]
     Active Substance: AMOXICILLIN
     Indication: Osteomyelitis
     Dosage: 1000 MILLIGRAM, DAILY
     Route: 048
     Dates: start: 20180701, end: 20180711
  34. AMOXICILLIN [Concomitant]
     Active Substance: AMOXICILLIN
     Dosage: 1 GRAM, TID
     Route: 048
     Dates: start: 20191115, end: 20191118
  35. AMOXICILLIN [Concomitant]
     Active Substance: AMOXICILLIN
     Dosage: 1 GRAM, TID
     Route: 048
     Dates: start: 20200626, end: 20200626
  36. AMOXICILLIN [Concomitant]
     Active Substance: AMOXICILLIN
     Dosage: 1000 MILLIGRAM, TID
     Route: 048
     Dates: start: 20180701, end: 20180711
  37. AMOXICILLIN [Concomitant]
     Active Substance: AMOXICILLIN
     Dosage: 500 MILLIGRAM, UNK
     Route: 048
     Dates: start: 20180701, end: 20180711
  38. AMOXICILLIN [Concomitant]
     Active Substance: AMOXICILLIN
     Dosage: 500 MILLIGRAM, TID
     Route: 048
     Dates: start: 20190414
  39. AMOXICILLIN [Concomitant]
     Active Substance: AMOXICILLIN
     Dosage: 1 GRAM, TID
     Route: 048
     Dates: start: 20191219, end: 20191221
  40. METRONIDAZOLE [Concomitant]
     Active Substance: METRONIDAZOLE
     Indication: Osteomyelitis
     Dosage: UNK
     Route: 048
     Dates: start: 20170701, end: 20170708
  41. METRONIDAZOLE [Concomitant]
     Active Substance: METRONIDAZOLE
     Indication: Cellulitis
     Dosage: 400 MILLIGRAM, QID
     Route: 048
     Dates: start: 20180915, end: 20180921
  42. DOXYCYCLINE [Concomitant]
     Active Substance: DOXYCYCLINE
     Indication: Pyrexia
     Dosage: UNK
     Route: 048
     Dates: start: 20170112, end: 20170118
  43. DOXYCYCLINE [Concomitant]
     Active Substance: DOXYCYCLINE
     Indication: Lower respiratory tract infection
     Dosage: 100 MILLIGRAM, DAILY
     Route: 048
     Dates: start: 20180814, end: 20180814
  44. DOXYCYCLINE [Concomitant]
     Active Substance: DOXYCYCLINE
     Indication: Pneumonia
     Dosage: 100 MILLIGRAM, QD
     Route: 048
     Dates: start: 20180815
  45. DOXYCYCLINE [Concomitant]
     Active Substance: DOXYCYCLINE
     Indication: Herpes zoster
     Dosage: 100 MILLIGRAM, QD
     Route: 048
     Dates: start: 20200728, end: 20200728
  46. DOXYCYCLINE [Concomitant]
     Active Substance: DOXYCYCLINE
     Dosage: 200 MILLIGRAM, QD
     Route: 048
     Dates: start: 20191223, end: 20191230
  47. DOXYCYCLINE [Concomitant]
     Active Substance: DOXYCYCLINE
     Dosage: 100 MILLIGRAM, QD
     Route: 048
     Dates: start: 20180815
  48. DOXYCYCLINE [Concomitant]
     Active Substance: DOXYCYCLINE
     Dosage: 100 MILLIGRAM, BID
     Route: 048
     Dates: start: 20180814, end: 20180814
  49. DOXYCYCLINE [Concomitant]
     Active Substance: DOXYCYCLINE
     Dosage: 100 MILLIGRAM, BID
     Route: 048
     Dates: start: 20190929, end: 20191005
  50. DOXYCYCLINE [Concomitant]
     Active Substance: DOXYCYCLINE
     Dosage: UNK, QD
     Route: 048
     Dates: start: 20170112, end: 20170112
  51. CITALOPRAM [Concomitant]
     Active Substance: CITALOPRAM HYDROBROMIDE
     Indication: Product used for unknown indication
     Dosage: 40 MILLIGRAM, DAILY
     Route: 048
     Dates: start: 2005
  52. BUTYLSCOPOLAMINE BROMIDE [Concomitant]
     Active Substance: BUTYLSCOPOLAMINE BROMIDE
     Indication: Nausea
     Dosage: 10 MILLIGRAM, DAILY
     Route: 048
     Dates: start: 20181222
  53. CLARITHROMYCIN [Concomitant]
     Active Substance: CLARITHROMYCIN
     Indication: Lower respiratory tract infection
     Dosage: 500 MILLIGRAM, BID
     Route: 048
     Dates: start: 20180701, end: 20180711
  54. CLARITHROMYCIN [Concomitant]
     Active Substance: CLARITHROMYCIN
     Dosage: 500 MILLIGRAM, BID
     Route: 048
     Dates: start: 20191219, end: 20191221
  55. CLARITHROMYCIN [Concomitant]
     Active Substance: CLARITHROMYCIN
     Dosage: 500 MILLIGRAM, BID
     Route: 048
     Dates: start: 20200728, end: 20200803
  56. CLARITHROMYCIN [Concomitant]
     Active Substance: CLARITHROMYCIN
     Dosage: 500 MILLIGRAM, BID
     Route: 048
     Dates: start: 20190415
  57. CLARITHROMYCIN [Concomitant]
     Active Substance: CLARITHROMYCIN
     Dosage: 500 MILLIGRAM, BID
     Route: 048
     Dates: start: 20191111, end: 20191118
  58. CLARITHROMYCIN [Concomitant]
     Active Substance: CLARITHROMYCIN
     Dosage: 500 MILLIGRAM, BID
     Route: 048
     Dates: start: 20200622, end: 20200628
  59. PEPTAC (UNITED KINGDOM) [Concomitant]
     Indication: Product used for unknown indication
     Dosage: 15 MILLILITER
     Route: 048
  60. LINEZOLID [Concomitant]
     Active Substance: LINEZOLID
     Indication: Pyrexia
     Dosage: 600 MILLIGRAM, BID
     Route: 048
     Dates: start: 20181223, end: 20181227
  61. PROMETHAZINE HYDROCHLORIDE [Concomitant]
     Active Substance: PROMETHAZINE HYDROCHLORIDE
     Indication: Product used for unknown indication
     Dosage: UNK
     Route: 048
  62. PROMETHAZINE HYDROCHLORIDE [Concomitant]
     Active Substance: PROMETHAZINE HYDROCHLORIDE
     Dosage: 25 MILLIGRAM, QD
     Route: 048
  63. PROMETHAZINE HYDROCHLORIDE [Concomitant]
     Active Substance: PROMETHAZINE HYDROCHLORIDE
     Dosage: 50 MILLIGRAM, QD
     Route: 048
  64. CYCLIZINE [Concomitant]
     Active Substance: CYCLIZINE
     Indication: Product used for unknown indication
     Dosage: 50 MILLIGRAM, TID
     Route: 048
     Dates: start: 201507
  65. VITAMIN D3 [Concomitant]
     Active Substance: CHOLECALCIFEROL
     Indication: Product used for unknown indication
     Dosage: 400 INTERNATIONAL UNIT, QD
     Route: 048
     Dates: start: 20150827
  66. TEICOPLANIN [Concomitant]
     Active Substance: TEICOPLANIN
     Indication: Pyrexia
     Dosage: 600 MILLIGRAM, BID
     Route: 042
     Dates: start: 20181019, end: 20181025
  67. TEICOPLANIN [Concomitant]
     Active Substance: TEICOPLANIN
     Dosage: 800 MILLIGRAM, BID
     Route: 042
     Dates: start: 20200728, end: 20200803
  68. CODEINE [Concomitant]
     Active Substance: CODEINE
     Indication: Product used for unknown indication
     Dosage: AS NEEDED
     Route: 048
     Dates: start: 201504
  69. DIAZEPAM [Concomitant]
     Active Substance: DIAZEPAM
     Indication: Musculoskeletal stiffness
     Dosage: UNK
     Route: 065
  70. MORPHINE SULFATE [Concomitant]
     Active Substance: MORPHINE SULFATE
     Indication: Product used for unknown indication
     Dosage: 10 MILLIGRAM, DAILY
     Route: 048
     Dates: start: 20171224
  71. LISINOPRIL [Concomitant]
     Active Substance: LISINOPRIL
     Indication: Ejection fraction decreased
     Dosage: 2.5 MILLIGRAM, DAILY
     Route: 048
     Dates: start: 20161110
  72. MORPHINE SULFATE [Concomitant]
     Active Substance: MORPHINE SULFATE
     Dosage: 30 MILLIGRAM, BID
     Route: 048
     Dates: start: 201611
  73. MORPHINE SULFATE [Concomitant]
     Active Substance: MORPHINE SULFATE
     Indication: Metastases to bone
  74. LANSOPRAZOLE [Concomitant]
     Active Substance: LANSOPRAZOLE
     Indication: Product used for unknown indication
     Dosage: 15 MILLIGRAM, DAILY
     Route: 048
     Dates: start: 2001
  75. LANSOPRAZOLE [Concomitant]
     Active Substance: LANSOPRAZOLE
     Dosage: 30 MILLIGRAM, QD, REFLUX
     Route: 048
  76. ADO-TRASTUZUMAB EMTANSINE [Suspect]
     Active Substance: ADO-TRASTUZUMAB EMTANSINE
     Indication: HER2 positive breast cancer
     Dosage: 420 MILLIGRAM,4 DOSE DAILY
     Route: 042
     Dates: start: 20180118
  77. CALCIUM [Concomitant]
     Active Substance: CALCIUM
     Indication: Product used for unknown indication
     Dosage: BONE DISEASE
     Route: 048
     Dates: start: 20150727, end: 20180117
  78. CIPROFLOXACIN [Concomitant]
     Active Substance: CIPROFLOXACIN
     Indication: Pyrexia
     Dosage: 750 MILLIGRAM, BID
     Route: 048
     Dates: start: 20190205, end: 20190206
  79. CLINDAMYCIN [Concomitant]
     Active Substance: CLINDAMYCIN
     Indication: Product used for unknown indication
  80. AMOXICILLIN\CLAVULANATE POTASSIUM [Concomitant]
     Active Substance: AMOXICILLIN\CLAVULANATE POTASSIUM
     Indication: Pyrexia
     Dosage: UNK
     Route: 048
     Dates: start: 20190322
  81. AMOXICILLIN\CLAVULANATE POTASSIUM [Concomitant]
     Active Substance: AMOXICILLIN\CLAVULANATE POTASSIUM
     Indication: Cellulitis
     Dosage: 625 MILLIGRAM, TID
     Route: 048
     Dates: start: 20190205, end: 20190206
  82. COTRIMOXAZOLE [Concomitant]
     Active Substance: SULFAMETHOXAZOLE\TRIMETHOPRIM
     Indication: Sepsis
     Dosage: 960 MILLIGRAM, BID
     Route: 048
     Dates: start: 20200728, end: 20200803
  83. COTRIMOXAZOLE [Concomitant]
     Active Substance: SULFAMETHOXAZOLE\TRIMETHOPRIM
     Indication: Pneumonia
     Dosage: 960 MILLIGRAM, BID
     Route: 042
     Dates: start: 20190611, end: 20190611
  84. COTRIMOXAZOLE [Concomitant]
     Active Substance: SULFAMETHOXAZOLE\TRIMETHOPRIM
     Indication: Pyrexia
     Dosage: 80/400, 1 TABLET
     Route: 048
     Dates: start: 20181015, end: 20181022
  85. COTRIMOXAZOLE [Concomitant]
     Active Substance: SULFAMETHOXAZOLE\TRIMETHOPRIM
     Dosage: 960 MILLIGRAM, BID
     Route: 048
     Dates: start: 20190206, end: 20190211
  86. DERMOL [Concomitant]
     Active Substance: BENZALKONIUM CHLORIDE\CHLORHEXIDINE HYDROCHLORIDE\ISOPROPYL MYRISTATE\PARAFFIN
     Indication: Product used for unknown indication
     Dosage: FOR SKIN, QID
     Route: 061
  87. FLUCLOXACILLIN [Concomitant]
     Active Substance: FLUCLOXACILLIN
     Indication: Pyrexia
     Dosage: 500 MILLIGRAM, QID
     Route: 048
     Dates: start: 20180915, end: 20180921
  88. FLUCLOXACILLIN [Concomitant]
     Active Substance: FLUCLOXACILLIN
     Indication: Cellulitis
     Dosage: 1 GRAM, QID
     Route: 065
     Dates: start: 20180912, end: 20180915
  89. FLUCLOXACILLIN [Concomitant]
     Active Substance: FLUCLOXACILLIN
     Dosage: PARONCHIA OF FINGER + TOE
     Route: 048
     Dates: start: 20180910, end: 20180912
  90. FLUCLOXACILLIN [Concomitant]
     Active Substance: FLUCLOXACILLIN
     Dosage: 1 GRAM, QID
     Route: 042
     Dates: start: 20020130, end: 20200202
  91. FUROSEMIDE [Concomitant]
     Active Substance: FUROSEMIDE
     Indication: Oedema peripheral
     Dosage: 40 MILLIGRAM, BID
     Route: 048
     Dates: start: 20200626
  92. FUROSEMIDE [Concomitant]
     Active Substance: FUROSEMIDE
     Indication: Oedema
     Dosage: 20 MILLIGRAM, QD
     Route: 048
     Dates: start: 20191113, end: 20191116
  93. FUROSEMIDE [Concomitant]
     Active Substance: FUROSEMIDE
     Dosage: 40 MILLIGRAM, QD
     Route: 048
     Dates: start: 20191117
  94. FUROSEMIDE [Concomitant]
     Active Substance: FUROSEMIDE
     Dosage: 40 MILLIGRAM, QD
     Route: 042
     Dates: start: 20200622, end: 20200623
  95. FUROSEMIDE [Concomitant]
     Active Substance: FUROSEMIDE
     Dosage: 40 MILLIGRAM, BID
     Route: 042
     Dates: start: 20200623, end: 20200626
  96. ENOXAPARIN SODIUM [Concomitant]
     Active Substance: ENOXAPARIN SODIUM
     Indication: Thrombolysis
     Dosage: DVT PROPHYLAXIS
     Route: 058
     Dates: start: 20200728, end: 20200805
  97. ENOXAPARIN SODIUM [Concomitant]
     Active Substance: ENOXAPARIN SODIUM
     Dosage: 40 MILLIGRAM, QD
     Route: 058
     Dates: start: 20200625, end: 20200625
  98. ENOXAPARIN SODIUM [Concomitant]
     Active Substance: ENOXAPARIN SODIUM
     Dosage: FOTR DVT PROHYLAXIS,
     Route: 058
     Dates: start: 20190610, end: 20190623
  99. ENOXAPARIN SODIUM [Concomitant]
     Active Substance: ENOXAPARIN SODIUM
     Dosage: THROMBOLYSISPROPHYLAXIS
     Route: 058
     Dates: start: 20200622, end: 20200623
  100. LEVOTHYROXINE [Concomitant]
     Active Substance: LEVOTHYROXINE
     Indication: Hypothyroidism
     Dosage: 50 MICROGRAM, QD
     Route: 048
     Dates: start: 20200311
  101. LOPERAMIDE [Concomitant]
     Active Substance: LOPERAMIDE
     Indication: Diarrhoea
     Dosage: UNK
     Route: 065
     Dates: start: 201804, end: 2019
  102. MAGNESIUM ASPARTATE [Concomitant]
     Active Substance: MAGNESIUM ASPARTATE
     Indication: Hypomagnesaemia
     Dosage: 6.5 GRAM, BID
     Route: 048
     Dates: start: 20191111
  103. NAPROXEN [Concomitant]
     Active Substance: NAPROXEN
     Indication: Product used for unknown indication
  104. CALCIUM CARBONATE\SODIUM ALGINATE\SODIUM BICARBONATE [Concomitant]
     Active Substance: CALCIUM CARBONATE\SODIUM ALGINATE\SODIUM BICARBONATE
     Indication: Dyspepsia
     Dosage: 15 MILLILITER, AS NECESSARY
     Route: 048
  105. PREDNISOLONE [Concomitant]
     Active Substance: PREDNISOLONE
     Indication: Pneumonia
     Dosage: 30 MILLIGRAM, QD
     Route: 048
     Dates: start: 20200625, end: 20200629
  106. RIFAMPIN [Concomitant]
     Active Substance: RIFAMPIN
     Indication: Cellulitis
     Dosage: 300 MILLIGRAM, BID
     Route: 048
     Dates: start: 20200212, end: 20200212
  107. PIPERACILLIN SODIUM\TAZOBACTAM SODIUM [Concomitant]
     Active Substance: PIPERACILLIN SODIUM\TAZOBACTAM SODIUM
     Indication: Pneumonia
     Dosage: 4.5 MILLIGRAM, TID
     Route: 042
     Dates: start: 20191221, end: 20191227
  108. PIPERACILLIN SODIUM\TAZOBACTAM SODIUM [Concomitant]
     Active Substance: PIPERACILLIN SODIUM\TAZOBACTAM SODIUM
     Indication: Pneumonia
     Dosage: 4.5 GRAM, TID
     Route: 042
     Dates: start: 20200202, end: 20200206
  109. PIPERACILLIN SODIUM\TAZOBACTAM SODIUM [Concomitant]
     Active Substance: PIPERACILLIN SODIUM\TAZOBACTAM SODIUM
     Indication: Cellulitis
  110. PIPERACILLIN SODIUM\TAZOBACTAM SODIUM [Concomitant]
     Active Substance: PIPERACILLIN SODIUM\TAZOBACTAM SODIUM
     Indication: Pneumonia
  111. TINZAPARIN [Concomitant]
     Active Substance: TINZAPARIN
     Indication: Deep vein thrombosis
     Dosage: 20000 U
     Route: 058
     Dates: start: 20190928
  112. TINZAPARIN [Concomitant]
     Active Substance: TINZAPARIN
     Dosage: POSSSIBLE DVTTREATMENT
     Route: 058
     Dates: start: 20200624, end: 20200624
  113. VANCOMYCIN [Concomitant]
     Active Substance: VANCOMYCIN
     Indication: Cellulitis
     Dosage: 1.5 GRAM, BID
     Route: 042
     Dates: start: 20200201, end: 20200206
  114. ZANAMIVIR [Concomitant]
     Active Substance: ZANAMIVIR
     Indication: Pyrexia
     Dosage: INHALANT
     Route: 065
     Dates: start: 20191218, end: 20191219
  115. AMOXICILLIN [Concomitant]
     Active Substance: AMOXICILLIN
     Indication: Pyrexia
     Dosage: 1 GRAM, TID
     Route: 042
     Dates: start: 20191111, end: 20191115
  116. AMOXICILLIN [Concomitant]
     Active Substance: AMOXICILLIN
     Dosage: 1 GRAM, TID
     Route: 042
     Dates: start: 20200622, end: 20200626
  117. AMOXICILLIN [Concomitant]
     Active Substance: AMOXICILLIN
     Dosage: 1 GRAM, UNK
     Route: 042
     Dates: start: 20191218, end: 20191219
  118. CLARITHROMYCIN [Concomitant]
     Active Substance: CLARITHROMYCIN
     Indication: Pneumonia
     Dosage: 500 MILLIGRAM, BID
     Route: 042
     Dates: start: 20190611, end: 20190611
  119. LINEZOLID [Concomitant]
     Active Substance: LINEZOLID
     Indication: Cellulitis
     Dosage: 600 MILLIGRAM, BID
     Route: 042
     Dates: start: 20200206, end: 20200212
  120. LINEZOLID [Concomitant]
     Active Substance: LINEZOLID
     Dosage: 600 MILLIGRAM, STAPHYLOCOCCUSAURES SHOWN ONSKIN/SUPERFISCIALWOUND SWAB A
     Route: 042
     Dates: start: 20190611, end: 20190621
  121. ACYCLOVIR [Concomitant]
     Active Substance: ACYCLOVIR
     Indication: Product used for unknown indication

REACTIONS (12)
  - Herpes zoster [Recovered/Resolved]
  - Humerus fracture [Recovered/Resolved]
  - Oral herpes [Recovered/Resolved]
  - Lymphoedema [Recovered/Resolved]
  - Anaemia [Recovered/Resolved]
  - Back pain [Recovered/Resolved]
  - Musculoskeletal stiffness [Not Recovered/Not Resolved]
  - Anaemia [Unknown]
  - Anaemia [Recovering/Resolving]
  - Dyspepsia [Recovered/Resolved]
  - Musculoskeletal stiffness [Not Recovered/Not Resolved]
  - Musculoskeletal stiffness [Not Recovered/Not Resolved]

NARRATIVE: CASE EVENT DATE: 20151112
